FAERS Safety Report 14016475 (Version 2)
Quarter: 2017Q4

REPORT INFORMATION
  Report Type: Spontaneous
  Country: US (occurrence: US)
  Receive Date: 20170927
  Receipt Date: 20171020
  Transmission Date: 20180321
  Serious: Yes (Other)
  Sender: FDA-Public Use
  Company Number: US-SA-2017SA114045

PATIENT
  Age: 48 Year
  Sex: Female

DRUGS (4)
  1. CAMPATH [Suspect]
     Active Substance: ALEMTUZUMAB
     Indication: MULTIPLE SCLEROSIS
     Route: 041
     Dates: start: 2010, end: 2010
  2. CAMPATH [Suspect]
     Active Substance: ALEMTUZUMAB
     Indication: MULTIPLE SCLEROSIS
     Route: 041
     Dates: start: 2008
  3. CAMPATH [Suspect]
     Active Substance: ALEMTUZUMAB
     Indication: MULTIPLE SCLEROSIS
     Route: 041
     Dates: start: 2009
  4. ZOVIRAX [Suspect]
     Active Substance: ACYCLOVIR
     Route: 065

REACTIONS (12)
  - Optic neuritis [Not Recovered/Not Resolved]
  - Pain [Recovered/Resolved]
  - Throat irritation [Recovered/Resolved]
  - Headache [Recovered/Resolved]
  - Product use issue [Unknown]
  - Multiple sclerosis relapse [Recovered/Resolved]
  - Cough [Recovered/Resolved]
  - Blindness [Not Recovered/Not Resolved]
  - Heart rate increased [Unknown]
  - Malaise [Recovered/Resolved]
  - Basedow^s disease [Not Recovered/Not Resolved]
  - Gait disturbance [Not Recovered/Not Resolved]

NARRATIVE: CASE EVENT DATE: 2010
